FAERS Safety Report 7594170-4 (Version None)
Quarter: 2011Q3

REPORT INFORMATION
  Report Type: 
  Country: None (occurrence: None)
  Receive Date: 20110706
  Receipt Date: 20110623
  Transmission Date: 20111222
  Serious: Yes (Other)
  Sender: FDA-Public Use
  Company Number: PHHY2010MX52992

PATIENT
  Age: 64 Year
  Sex: Female

DRUGS (11)
  1. CRESTOR [Concomitant]
  2. CONTROLIP [Concomitant]
  3. TENORMIN [Concomitant]
     Dosage: UNK
  4. TENORMIN [Concomitant]
     Dosage: HALF TABLET PER DAY
  5. BROQUIXOL [Concomitant]
  6. CLOPIDOGREL BISULFATE [Concomitant]
  7. LEXOTAN [Concomitant]
  8. DIOVAN HCT [Suspect]
     Indication: HYPERTENSION
     Dosage: 1 TABLET (160/12.5 MG ) PER DAY
     Dates: start: 20100401
  9. EZETIMIBE [Concomitant]
  10. DIOVAN HCT [Suspect]
     Dosage: HALF TABLET 160/12.5 MG PER DAY
     Dates: start: 20110301
  11. EVISTA [Concomitant]

REACTIONS (8)
  - JOINT INJURY [None]
  - HAEMATOMA [None]
  - FALL [None]
  - HYPOTENSION [None]
  - MYALGIA [None]
  - CHEST PAIN [None]
  - LIMB INJURY [None]
  - WRONG TECHNIQUE IN DRUG USAGE PROCESS [None]
